FAERS Safety Report 7562810-1 (Version None)
Quarter: 2011Q2

REPORT INFORMATION
  Report Type: 
  Country: None (occurrence: None)
  Receive Date: 20110622
  Receipt Date: 20110614
  Transmission Date: 20111010
  Serious: No
  Sender: FDA-Public Use
  Company Number: US-JNJFOC-20110509402

PATIENT
  Sex: Female
  Weight: 75.75 kg

DRUGS (4)
  1. DURAGESIC-100 [Suspect]
     Indication: SCOLIOSIS
     Route: 062
  2. UNKNOWN MEDICATION [Concomitant]
     Indication: EPILEPSY
     Route: 065
  3. DURAGESIC-100 [Suspect]
     Route: 062
  4. DURAGESIC-100 [Suspect]
     Route: 062

REACTIONS (7)
  - MENOPAUSE [None]
  - WRONG TECHNIQUE IN DRUG USAGE PROCESS [None]
  - MENOPAUSAL SYMPTOMS [None]
  - HYPERHIDROSIS [None]
  - ERYTHEMA [None]
  - THERAPEUTIC RESPONSE DECREASED [None]
  - FEELING HOT [None]
